FAERS Safety Report 11186594 (Version 1)
Quarter: 2015Q2

REPORT INFORMATION
  Report Type: Spontaneous
  Country: IT (occurrence: IT)
  Receive Date: 20150613
  Receipt Date: 20150613
  Transmission Date: 20150821
  Serious: Yes (Hospitalization)
  Sender: FDA-Public Use
  Company Number: IT-HOSPIRA-2568024

PATIENT
  Age: 31 Year
  Sex: Female

DRUGS (3)
  1. IDARUBICIN [Suspect]
     Active Substance: IDARUBICIN
     Indication: LYMPHOPROLIFERATIVE DISORDER
     Dosage: EVERY OTHER DAY
     Route: 042
     Dates: start: 20090813, end: 20090815
  2. CYTARABINE. [Suspect]
     Active Substance: CYTARABINE
     Indication: LYMPHOPROLIFERATIVE DISORDER
     Dosage: DAILY
     Route: 042
     Dates: start: 20090813, end: 20090817
  3. FLUDARABINE PHOSPHATE. [Suspect]
     Active Substance: FLUDARABINE PHOSPHATE
     Indication: LYMPHOPROLIFERATIVE DISORDER
     Dosage: DAILY
     Route: 042
     Dates: start: 20090813, end: 20090817

REACTIONS (2)
  - Device related sepsis [Recovered/Resolved]
  - Staphylococcal sepsis [Recovered/Resolved]

NARRATIVE: CASE EVENT DATE: 20090820
